FAERS Safety Report 15602726 (Version 2)
Quarter: 2019Q1

REPORT INFORMATION
  Report Type: Spontaneous
  Country: US (occurrence: US)
  Receive Date: 20181109
  Receipt Date: 20190314
  Transmission Date: 20190417
  Serious: Yes (Other)
  Sender: FDA-Public Use
  Company Number: US-SA-2018SA307084

PATIENT
  Age: 60 Year
  Sex: Female
  Weight: 65.31 kg

DRUGS (15)
  1. TAXOTERE [Suspect]
     Active Substance: DOCETAXEL
     Dosage: 130 MG, Q3W
     Route: 042
     Dates: start: 20101209, end: 20101209
  2. TYNELOL [Concomitant]
     Active Substance: ACETAMINOPHEN
  3. ATIVAN [Concomitant]
     Active Substance: LORAZEPAM
  4. LISINOPRIL. [Concomitant]
     Active Substance: LISINOPRIL
     Dosage: UNK
  5. ALOXI [Concomitant]
     Active Substance: PALONOSETRON HYDROCHLORIDE
     Dosage: 0.25 MG
  6. DECADRON [Concomitant]
     Active Substance: DEXAMETHASONE
     Dosage: 20 MG
  7. NEULASTA [Concomitant]
     Active Substance: PEGFILGRASTIM
  8. FEMARA [Concomitant]
     Active Substance: LETROZOLE
     Dosage: UNK
  9. CLOPIDOGREL [Concomitant]
     Active Substance: CLOPIDOGREL BISULFATE
     Dosage: UNK
  10. TAXOTERE [Suspect]
     Active Substance: DOCETAXEL
     Indication: BREAST CANCER FEMALE
     Dosage: 130 MG, Q3W
     Route: 042
     Dates: start: 20100825, end: 20100825
  11. RANEXA [Concomitant]
     Active Substance: RANOLAZINE
     Dosage: UNK
  12. ISOSORBIDE. [Concomitant]
     Active Substance: ISOSORBIDE
     Dosage: UNK
  13. HERCEPTIN [Concomitant]
     Active Substance: TRASTUZUMAB
     Dosage: 135 MG
  14. TOPROL XL [Concomitant]
     Active Substance: METOPROLOL SUCCINATE
     Dosage: UNK
  15. PARAPLATIN [Concomitant]
     Active Substance: CARBOPLATIN
     Dosage: 500 MG, UNK

REACTIONS (1)
  - Alopecia [Recovering/Resolving]
